FAERS Safety Report 4387887-6 (Version None)
Quarter: 2004Q2

REPORT INFORMATION
  Report Type: 
  Country: None (occurrence: None)
  Receive Date: 20040607
  Receipt Date: 20031017
  Transmission Date: 20050107
  Serious: No
  Sender: FDA-Public Use
  Company Number: 349709

PATIENT
  Age: 15 Year
  Sex: Male

DRUGS (1)
  1. ACCUTANE [Suspect]
     Indication: ACNE
     Dosage: 40 MG 2 PER DAY ORAL
     Route: 048
     Dates: start: 20030625, end: 20031003

REACTIONS (1)
  - AGGRESSION [None]
